FAERS Safety Report 9459663 (Version 5)
Quarter: 2015Q3

REPORT INFORMATION
  Report Type: Report from Study
  Country: IT (occurrence: IT)
  Receive Date: 20130815
  Receipt Date: 20150903
  Transmission Date: 20151125
  Serious: Yes (Death, Hospitalization, Other)
  Sender: FDA-Public Use
  Company Number: PHHO2013IT009493

PATIENT
  Age: 62 Year
  Sex: Male
  Weight: 70.5 kg

DRUGS (3)
  1. AFINITOR [Suspect]
     Active Substance: EVEROLIMUS
     Indication: NEUROENDOCRINE TUMOUR
     Dosage: 5 MG, UNK
     Route: 048
     Dates: start: 20130604, end: 20130717
  2. GLUCOPHAGE [Concomitant]
     Active Substance: METFORMIN HYDROCHLORIDE
     Indication: HYPERGLYCAEMIA
     Dosage: 850 MG, UNK
     Route: 065
     Dates: start: 20130715, end: 20130718
  3. OCTREOTIDE. [Concomitant]
     Active Substance: OCTREOTIDE
     Indication: PRODUCT USED FOR UNKNOWN INDICATION
     Dosage: 30 MG, UNK
     Route: 065
     Dates: start: 20071212, end: 20130717

REACTIONS (6)
  - Subarachnoid haemorrhage [Fatal]
  - Haemorrhage [Not Recovered/Not Resolved]
  - Pneumonia [Fatal]
  - Aplastic anaemia [Fatal]
  - Thrombocytopenia [Fatal]
  - Petechiae [Not Recovered/Not Resolved]

NARRATIVE: CASE EVENT DATE: 20130715
